FAERS Safety Report 17978989 (Version 1)
Quarter: 2020Q3

REPORT INFORMATION
  Report Type: Report from Study
  Country: US (occurrence: US)
  Receive Date: 20200703
  Receipt Date: 20200703
  Transmission Date: 20201103
  Serious: Yes (Death)
  Sender: FDA-Public Use
  Company Number: US-ASTRAZENECA-2020SE83658

PATIENT
  Age: 27789 Day
  Sex: Male

DRUGS (6)
  1. LOPRESSOR [Concomitant]
     Active Substance: METOPROLOL TARTRATE
  2. ACYCLOVIR. [Concomitant]
     Active Substance: ACYCLOVIR
  3. DIGOXIN. [Concomitant]
     Active Substance: DIGOXIN
  4. ASPIRIN. [Concomitant]
     Active Substance: ASPIRIN
  5. CALQUENCE [Suspect]
     Active Substance: ACALABRUTINIB
     Indication: B-CELL LYMPHOMA
     Route: 048
  6. POTASSIUM [Concomitant]
     Active Substance: POTASSIUM

REACTIONS (1)
  - Death [Fatal]

NARRATIVE: CASE EVENT DATE: 20200623
